FAERS Safety Report 16973735 (Version 1)
Quarter: 2019Q4

REPORT INFORMATION
  Report Type: Spontaneous
  Country: US (occurrence: US)
  Receive Date: 20191030
  Receipt Date: 20191030
  Transmission Date: 20200122
  Serious: No
  Sender: FDA-Public Use
  Company Number: US-BAYER-2019-195475

PATIENT
  Age: 75 Year
  Sex: Male
  Weight: 104 kg

DRUGS (1)
  1. MIRALAX [Suspect]
     Active Substance: POLYETHYLENE GLYCOL 3350
     Indication: CONSTIPATION
     Dosage: 17 G, QD
     Route: 048
     Dates: start: 200811

REACTIONS (3)
  - Off label use [Unknown]
  - Product use in unapproved indication [Unknown]
  - Product closure removal difficult [None]

NARRATIVE: CASE EVENT DATE: 200811
